FAERS Safety Report 20557475 (Version 8)
Quarter: 2022Q2

REPORT INFORMATION
  Report Type: Report from Study
  Country: HU (occurrence: None)
  Receive Date: 20220307
  Receipt Date: 20220621
  Transmission Date: 20220721
  Serious: Yes (Other)
  Sender: FDA-Public Use
  Company Number: HU-ROCHE-3033661

PATIENT
  Age: 56 Year
  Sex: Female
  Weight: 60 kg

DRUGS (6)
  1. FARICIMAB [Suspect]
     Active Substance: FARICIMAB
     Indication: Macular oedema
     Dosage: START DATE OF MOST RECENT DOSE OF STUDY DRUG PRIOR TO AE/SAE: 08/FEB/2022
     Route: 050
     Dates: start: 20211110
  2. PLACEBO [Suspect]
     Active Substance: UNSPECIFIED INGREDIENT
     Indication: Macular oedema
     Dosage: START DATE OF MOST RECENT DOSE OF STUDY DRUG PRIOR TO AE/SAE: 08/FEB/2022
     Route: 050
     Dates: start: 20211110
  3. DIOSMIN\HESPERIDIN [Concomitant]
     Active Substance: DIOSMIN\HESPERIDIN
     Route: 048
     Dates: start: 20210927
  4. ROSUVASTATIN [Concomitant]
     Active Substance: ROSUVASTATIN
     Indication: Hypercholesterolaemia
     Route: 048
     Dates: start: 20211015
  5. ASPIRIN [Concomitant]
     Active Substance: ASPIRIN
     Route: 048
     Dates: start: 20210927
  6. COSOPT MULTI [Concomitant]
     Route: 047
     Dates: start: 20211116

REACTIONS (2)
  - Iridocyclitis [Not Recovered/Not Resolved]
  - Uveitis [Not Recovered/Not Resolved]

NARRATIVE: CASE EVENT DATE: 20220214
